FAERS Safety Report 10347041 (Version 3)
Quarter: 2014Q4

REPORT INFORMATION
  Report Type: Spontaneous
  Country: GB (occurrence: GB)
  Receive Date: 20140729
  Receipt Date: 20141029
  Transmission Date: 20150528
  Serious: Yes (Hospitalization, Other)
  Sender: FDA-Public Use
  Company Number: PHFR2014GB005219

PATIENT
  Age: 73 Year
  Sex: Male

DRUGS (9)
  1. RAMPRIL [Concomitant]
     Indication: HYPERTENSION
     Dosage: 10 MG, DAILY
     Route: 048
  2. CLOZARIL [Suspect]
     Active Substance: CLOZAPINE
     Indication: SCHIZOPHRENIA
     Dosage: 300 MG, DAILY
     Dates: start: 1996
  3. HALOPERIDOL. [Concomitant]
     Active Substance: HALOPERIDOL
     Indication: PSYCHOTIC DISORDER
     Dosage: 5 MG, DAILY
     Dates: start: 2011
  4. LERCANIDIPINE [Concomitant]
     Active Substance: LERCANIDIPINE
     Dosage: 20 MG, DAILY
  5. TEMAZEPAM. [Concomitant]
     Active Substance: TEMAZEPAM
     Indication: INSOMNIA
     Dosage: 10 MG, DAILY
     Route: 048
  6. SIMVASTATIN. [Concomitant]
     Active Substance: SIMVASTATIN
     Indication: BLOOD CHOLESTEROL
     Dosage: 20 MG, DAILY
     Route: 048
  7. TAMSULOSIN [Concomitant]
     Active Substance: TAMSULOSIN
     Dosage: 400 UG, DAILY
  8. ASPIRIN. [Concomitant]
     Active Substance: ASPIRIN
     Indication: CEREBROVASCULAR ACCIDENT
     Dosage: 75 MG, DAILY
     Route: 048
  9. OMEPRAZOLE. [Concomitant]
     Active Substance: OMEPRAZOLE
     Dosage: 20 MG, DAILY

REACTIONS (5)
  - Circulatory collapse [Recovered/Resolved]
  - Dehydration [Unknown]
  - Haematemesis [Recovered/Resolved]
  - Oesophagitis [Recovered/Resolved]
  - Upper gastrointestinal haemorrhage [Recovered/Resolved]

NARRATIVE: CASE EVENT DATE: 20140723
